FAERS Safety Report 4363787-2 (Version None)
Quarter: 2004Q2

REPORT INFORMATION
  Report Type: 
  Country: None (occurrence: None)
  Receive Date: 20040524
  Receipt Date: 20040209
  Transmission Date: 20050107
  Serious: Yes (Hospitalization)
  Sender: FDA-Public Use
  Company Number: PL-MERCK-0402POL00018

PATIENT
  Age: 6 Year
  Sex: Male

DRUGS (6)
  1. CETIRIZINE HCL [Concomitant]
     Indication: RHINITIS
     Route: 048
     Dates: start: 20030120
  2. CETIRIZINE HYDROCHLORIDE [Concomitant]
     Indication: ASTHMA
     Route: 048
     Dates: start: 20030120
  3. FLUTICASONE PROPIONATE [Concomitant]
     Indication: ASTHMA
     Route: 055
     Dates: start: 20021205
  4. INOSINE PRANOBEX [Suspect]
     Indication: VIRAL INFECTION
     Route: 048
     Dates: start: 20021221, end: 20021231
  5. SINGULAIR [Suspect]
     Indication: ASTHMA
     Route: 048
     Dates: start: 20011116, end: 20030512
  6. SALMETEROL XINAFOATE [Concomitant]
     Indication: ASTHMA
     Route: 055
     Dates: start: 20021205

REACTIONS (9)
  - BLOOD FIBRINOGEN ABNORMAL [None]
  - HAEMOGLOBIN DECREASED [None]
  - INTERNATIONAL NORMALISED RATIO DECREASED [None]
  - PHARYNGITIS [None]
  - PROTHROMBIN TIME PROLONGED [None]
  - RED BLOOD CELL COUNT DECREASED [None]
  - THROMBIN TIME ABNORMAL [None]
  - THROMBOCYTOPENIA [None]
  - VIRAL INFECTION [None]
